FAERS Safety Report 9649461 (Version 1)
Quarter: 2013Q4

REPORT INFORMATION
  Report Type: Spontaneous
  Country: US (occurrence: US)
  Receive Date: 20131028
  Receipt Date: 20131028
  Transmission Date: 20140711
  Serious: Yes (Other)
  Sender: FDA-Public Use
  Company Number: US-PFIZER INC-2013307477

PATIENT
  Age: 70 Year
  Sex: Male
  Weight: 112 kg

DRUGS (2)
  1. LYRICA [Suspect]
     Indication: SPINAL COLUMN STENOSIS
     Dosage: 75 MG, 2X/DAY
  2. LYRICA [Suspect]
     Indication: FIBROMYALGIA
     Dosage: 75 MG, DAILY

REACTIONS (6)
  - Off label use [Unknown]
  - Spinal cord disorder [Unknown]
  - Cerebrospinal fluid retention [Recovered/Resolved]
  - Pain [Not Recovered/Not Resolved]
  - Sciatica [Unknown]
  - Blood cholesterol increased [Unknown]
